FAERS Safety Report 8459081-0 (Version None)
Quarter: 2012Q2

REPORT INFORMATION
  Report Type: 
  Country: None (occurrence: None)
  Receive Date: 20120622
  Receipt Date: 20120619
  Transmission Date: 20120825
  Serious: Yes (Other)
  Sender: FDA-Public Use
  Company Number: US-ROCHE-1079788

PATIENT
  Sex: Male

DRUGS (3)
  1. ACCUTANE [Suspect]
     Dates: start: 20050101
  2. ACCUTANE [Suspect]
     Indication: ACNE
     Dates: start: 19880101
  3. ACCUTANE [Suspect]
     Dates: start: 20000101

REACTIONS (4)
  - COLITIS ULCERATIVE [None]
  - EMOTIONAL DISTRESS [None]
  - INFLAMMATORY BOWEL DISEASE [None]
  - ANXIETY [None]
